FAERS Safety Report 9167254 (Version 1)
Quarter: 2013Q1

REPORT INFORMATION
  Report Type: Spontaneous
  Country: US (occurrence: None)
  Receive Date: 20130305
  Receipt Date: 20130305
  Transmission Date: 20140127
  Serious: Yes (Other)
  Sender: FDA-Public Use
  Company Number: 2013-0927

PATIENT
  Sex: Female

DRUGS (1)
  1. DYSPORT (BOTULINUM TOXIN TYPE A) (BOTULINUM TOXIN TYPE A) [Suspect]
     Dosage: 900 UNITS (900 UNITS, 1 IN 1 CYCLE(S))

REACTIONS (5)
  - Ill-defined disorder [None]
  - Dyspnoea [None]
  - Dyspnoea [None]
  - Dysphagia [None]
  - Asthenia [None]
